FAERS Safety Report 10978337 (Version 3)
Quarter: 2015Q2

REPORT INFORMATION
  Report Type: Spontaneous
  Country: US (occurrence: US)
  Receive Date: 20150402
  Receipt Date: 20150513
  Transmission Date: 20150821
  Serious: No
  Sender: FDA-Public Use
  Company Number: US-LUNDBECK-DKLU1109770

PATIENT
  Age: 78 Year
  Sex: Female

DRUGS (4)
  1. FLUDROCORTISONE [Concomitant]
     Active Substance: FLUDROCORTISONE
     Indication: PRODUCT USED FOR UNKNOWN INDICATION
     Dates: end: 20150304
  2. NORTHERA [Suspect]
     Active Substance: DROXIDOPA
     Indication: AUTONOMIC FAILURE SYNDROME
     Route: 048
     Dates: end: 20150304
  3. NORTHERA [Suspect]
     Active Substance: DROXIDOPA
     Indication: NEUROPATHY PERIPHERAL
     Route: 065
     Dates: start: 201503
  4. NORTHERA [Suspect]
     Active Substance: DROXIDOPA
     Indication: ORTHOSTATIC HYPOTENSION
     Route: 065

REACTIONS (13)
  - Gait disturbance [Unknown]
  - Upper-airway cough syndrome [Unknown]
  - Hypotension [Unknown]
  - Muscle spasms [Unknown]
  - Dizziness [Unknown]
  - Gastrointestinal disorder [Unknown]
  - Headache [Unknown]
  - Drug ineffective [Unknown]
  - Head injury [Unknown]
  - Blood pressure increased [Unknown]
  - Fall [Unknown]
  - Condition aggravated [Unknown]
  - Nausea [Recovered/Resolved]

NARRATIVE: CASE EVENT DATE: 20150303
